FAERS Safety Report 8503782-2 (Version None)
Quarter: 2012Q3

REPORT INFORMATION
  Report Type: 
  Country: None (occurrence: None)
  Receive Date: 20120711
  Receipt Date: 20120703
  Transmission Date: 20120928
  Serious: Yes (Hospitalization, Disabling, Other)
  Sender: FDA-Public Use
  Company Number: US-009507513-1106USA01826

PATIENT

DRUGS (8)
  1. DIDRONEL [Concomitant]
     Indication: OSTEOPOROSIS PROPHYLAXIS
  2. BONIVA [Concomitant]
     Indication: OSTEOPOROSIS
     Dosage: UNK UNK, QD
     Route: 048
     Dates: start: 20070606, end: 20080401
  3. RECLAST [Concomitant]
     Indication: OSTEOPOROSIS PROPHYLAXIS
  4. FOSAMAX [Suspect]
     Indication: OSTEOPOROSIS PROPHYLAXIS
     Dosage: 10 MG, QD
     Route: 048
     Dates: start: 19980401, end: 20050301
  5. BONIVA [Concomitant]
     Indication: OSTEOPOROSIS PROPHYLAXIS
  6. FOSAMAX [Suspect]
     Indication: OSTEOPOROSIS
     Dosage: 70 MG, QW
     Route: 048
     Dates: start: 19980101, end: 20070823
  7. FOSAMAX [Suspect]
     Dosage: 70 MG, QW
     Route: 048
     Dates: start: 20050302, end: 20070606
  8. RECLAST [Concomitant]
     Indication: OSTEOPOROSIS
     Route: 041
     Dates: start: 20080422, end: 20090427

REACTIONS (44)
  - MYOFASCIAL PAIN SYNDROME [None]
  - CONSTIPATION [None]
  - SPINAL CLAUDICATION [None]
  - HOUSE DUST ALLERGY [None]
  - MIGRAINE [None]
  - GASTROOESOPHAGEAL REFLUX DISEASE [None]
  - HYPERLIPIDAEMIA [None]
  - FALL [None]
  - DEVICE FAILURE [None]
  - LIPOMA [None]
  - INTERVERTEBRAL DISC DEGENERATION [None]
  - HIP FRACTURE [None]
  - BACK PAIN [None]
  - OBESITY [None]
  - SCIATICA [None]
  - ALLERGY TO ANIMAL [None]
  - HIATUS HERNIA [None]
  - CARPAL TUNNEL SYNDROME [None]
  - SINUSITIS [None]
  - DEPRESSION [None]
  - TUBERCULOSIS [None]
  - TENDON DISORDER [None]
  - IMPAIRED HEALING [None]
  - SPINAL OSTEOARTHRITIS [None]
  - MASS [None]
  - TARDIVE DYSKINESIA [None]
  - ANAEMIA [None]
  - FEMUR FRACTURE [None]
  - GASTROINTESTINAL STROMAL TUMOUR [None]
  - FOOT FRACTURE [None]
  - ARTHRALGIA [None]
  - BURSITIS [None]
  - INTERVERTEBRAL DISC PROTRUSION [None]
  - LUMBAR SPINAL STENOSIS [None]
  - FRACTURE DELAYED UNION [None]
  - WEIGHT INCREASED [None]
  - CATARACT [None]
  - MUSCULOSKELETAL PAIN [None]
  - PAIN IN EXTREMITY [None]
  - FAECAL INCONTINENCE [None]
  - VISUAL IMPAIRMENT [None]
  - ARTHRITIS [None]
  - HYPERTENSION [None]
  - SPONDYLOLISTHESIS [None]
